FAERS Safety Report 5085266-X (Version None)
Quarter: 2006Q3

REPORT INFORMATION
  Report Type: 
  Country: None (occurrence: None)
  Receive Date: 20060822
  Receipt Date: 20060808
  Transmission Date: 20061208
  Serious: Yes (Death, Hospitalization)
  Sender: FDA-Public Use
  Company Number: ITWYE576208AUG06

PATIENT
  Sex: Female

DRUGS (12)
  1. ENBREL [Suspect]
     Indication: RHEUMATOID ARTHRITIS
     Route: 058
     Dates: start: 20060206, end: 20060614
  2. ENBREL [Suspect]
     Indication: PSORIASIS
  3. DELTACORTENE [Suspect]
     Indication: RHEUMATOID ARTHRITIS
     Route: 048
     Dates: start: 20010519, end: 20060712
  4. DELTACORTENE [Suspect]
     Indication: PSORIASIS
  5. METHOTREXATE [Suspect]
     Indication: RHEUMATOID ARTHRITIS
     Route: 048
     Dates: start: 20010519, end: 20060712
  6. METHOTREXATE [Suspect]
     Indication: PSORIASIS
  7. FOSAVANCE [Concomitant]
     Indication: RHEUMATOID ARTHRITIS
     Dosage: 70 MG
     Route: 048
     Dates: start: 20060206, end: 20060712
  8. FOSAVANCE [Concomitant]
     Indication: PSORIASIS
  9. FOLIC ACID [Concomitant]
     Dosage: NOT REPORTED
     Route: 048
     Dates: start: 20060201
  10. IBUPROFEN [Concomitant]
     Dosage: 400 MG ON DEMAND
     Route: 065
     Dates: start: 20060201
  11. MAALOX FAST BLOCKER [Concomitant]
     Dosage: ON DEMAND
     Route: 065
     Dates: start: 20060401
  12. LANSOX [Concomitant]
     Indication: GASTRITIS
     Dosage: 30 MG
     Route: 048
     Dates: start: 20060419, end: 20060712

REACTIONS (5)
  - CARDIO-RESPIRATORY ARREST [None]
  - DEEP VEIN THROMBOSIS [None]
  - DYSPNOEA [None]
  - GASTRIC CANCER [None]
  - RENAL FAILURE ACUTE [None]
